FAERS Safety Report 12447376 (Version 23)
Quarter: 2021Q3

REPORT INFORMATION
  Report Type: Spontaneous
  Country: US (occurrence: US)
  Receive Date: 20160608
  Receipt Date: 20210820
  Transmission Date: 20211014
  Serious: Yes (Other)
  Sender: FDA-Public Use
  Company Number: US-PFIZER INC-2016260265

PATIENT
  Age: 51 Year
  Sex: Female
  Weight: 79 kg

DRUGS (17)
  1. LYRICA [Suspect]
     Active Substance: PREGABALIN
     Indication: BACK PAIN
     Dosage: 300 MG, 2X/DAY
     Route: 048
  2. LYRICA [Suspect]
     Active Substance: PREGABALIN
     Dosage: 300 MG, 3X/DAY
     Route: 048
  3. HUMULIN NOS [Concomitant]
     Active Substance: INSULIN HUMAN
     Indication: BLOOD INSULIN ABNORMAL
     Dosage: 100 IU, 3X/DAY (70/30, HAS BEEN ON THIS FOR 14 OR 15 YEARS)
  4. LYRICA [Suspect]
     Active Substance: PREGABALIN
     Indication: NEUROPATHY PERIPHERAL
     Dosage: 300 MG, UNK (300MG THREE TO FOUR TIMES A DAY)
     Route: 048
  5. LYRICA [Suspect]
     Active Substance: PREGABALIN
     Dosage: 300 MG, 2X/DAY
     Route: 048
  6. LYRICA [Suspect]
     Active Substance: PREGABALIN
     Indication: POLYNEUROPATHY
     Dosage: 300 MG, 1X/DAY
     Route: 048
     Dates: start: 20160518
  7. LYRICA [Suspect]
     Active Substance: PREGABALIN
     Indication: PARAESTHESIA
     Dosage: 75 MG, 2X/DAY
     Route: 048
  8. LYRICA [Suspect]
     Active Substance: PREGABALIN
     Indication: PERIPHERAL SWELLING
     Dosage: 100 MG, 3X/DAY
     Route: 048
     Dates: start: 2018
  9. LYRICA [Suspect]
     Active Substance: PREGABALIN
     Indication: PAIN
     Dosage: 300 MG, 2X/DAY
     Route: 048
  10. GEMFIBROZIL. [Concomitant]
     Active Substance: GEMFIBROZIL
     Indication: DIABETES MELLITUS
     Dosage: 600 MG, 2X/DAY (TAKING FOR 10 TO 15 YEARS)
  11. LYRICA [Suspect]
     Active Substance: PREGABALIN
     Indication: DIABETIC NEUROPATHY
     Dosage: 300 MG, 3X/DAY
     Route: 048
     Dates: end: 201703
  12. LYRICA [Suspect]
     Active Substance: PREGABALIN
     Indication: DIABETES MELLITUS
     Dosage: 300 MG, 2X/DAY, [90 DAYS]
     Route: 048
  13. LYRICA [Suspect]
     Active Substance: PREGABALIN
     Indication: PRURITUS
     Dosage: 300 MG, 4X/DAY
     Route: 048
  14. HYDROCHLOROTHIAZIDE. [Concomitant]
     Active Substance: HYDROCHLOROTHIAZIDE
     Indication: BLOOD PRESSURE ABNORMAL
     Dosage: 25 MG, DAILY
     Route: 048
  15. LYRICA [Suspect]
     Active Substance: PREGABALIN
     Indication: NEUROPATHY PERIPHERAL
     Dosage: 300 MG, 3X/DAY
     Route: 048
     Dates: start: 2000
  16. HYDROCHLOROTHIAZIDE. [Concomitant]
     Active Substance: HYDROCHLOROTHIAZIDE
     Indication: DIURETIC THERAPY
  17. GLUCOPHAGE [Concomitant]
     Active Substance: METFORMIN HYDROCHLORIDE
     Indication: BLOOD CHOLESTEROL ABNORMAL
     Dosage: 500 MG, 2X/DAY
     Route: 048

REACTIONS (33)
  - Drug dependence [Unknown]
  - Pruritus [Not Recovered/Not Resolved]
  - Oropharyngeal discomfort [Unknown]
  - Fall [Unknown]
  - Therapeutic product effect incomplete [Unknown]
  - Prescription drug used without a prescription [Unknown]
  - Feeling abnormal [Unknown]
  - Dizziness [Unknown]
  - Aphonia [Unknown]
  - Cerebrovascular accident [Unknown]
  - Product use issue [Unknown]
  - Prescribed overdose [Unknown]
  - Scratch [Unknown]
  - Pain in extremity [Not Recovered/Not Resolved]
  - Seizure [Unknown]
  - Drug effective for unapproved indication [Unknown]
  - Peripheral swelling [Unknown]
  - Dyspnoea [Unknown]
  - Diabetes mellitus inadequate control [Unknown]
  - Irritability [Not Recovered/Not Resolved]
  - Gait disturbance [Unknown]
  - Emotional disorder [Not Recovered/Not Resolved]
  - Abdominal discomfort [Unknown]
  - Illness [Unknown]
  - Off label use [Unknown]
  - Product dispensing error [Unknown]
  - Drug tolerance [Unknown]
  - Vertigo [Unknown]
  - Pain [Unknown]
  - Insomnia [Unknown]
  - Drug ineffective [Unknown]
  - Intentional product misuse [Unknown]
  - Paraesthesia [Unknown]

NARRATIVE: CASE EVENT DATE: 2000
